FAERS Safety Report 17545788 (Version 1)
Quarter: 2020Q1

REPORT INFORMATION
  Report Type: Report from Study
  Country: US (occurrence: BR)
  Receive Date: 20200316
  Receipt Date: 20200316
  Transmission Date: 20200409
  Serious: Yes (Hospitalization, Other)
  Sender: FDA-Public Use
  Company Number: US-SUNOVION-2017SUN005632

PATIENT
  Age: 84 Year
  Sex: Male

DRUGS (8)
  1. SEEBRI BREEZHALER [Concomitant]
     Active Substance: GLYCOPYRROLATE
     Indication: FATIGUE
     Dosage: 50 UG, BID (FOR 2 YEARS)
     Route: 065
  2. SEEBRI BREEZHALER [Concomitant]
     Active Substance: GLYCOPYRROLATE
     Indication: DYSPNOEA
  3. ALENIA [Concomitant]
     Indication: FATIGUE
     Route: 065
  4. ONBREZ BREEZHALER [Concomitant]
     Active Substance: INDACATEROL
     Indication: DYSPNOEA
  5. ONBREZ BREEZHALER [Concomitant]
     Active Substance: INDACATEROL
     Indication: FATIGUE
     Dosage: 150 MG, (FOR ABOUT 6 MONTHS)
     Route: 065
  6. ALENIA [Concomitant]
     Indication: DYSPNOEA
  7. INDACATEROL AND GLYCOPYRROLATE [Suspect]
     Active Substance: GLYCOPYRROLATE\INDACATEROL MALEATE
     Indication: DYSPNOEA
     Dosage: 1 DF, QD
     Route: 065
     Dates: start: 20170313
  8. INDACATEROL AND GLYCOPYRROLATE [Suspect]
     Active Substance: GLYCOPYRROLATE\INDACATEROL MALEATE
     Indication: FATIGUE

REACTIONS (13)
  - Confusional state [Unknown]
  - Weight increased [Unknown]
  - Blood cholesterol abnormal [Unknown]
  - Hypoacusis [Not Recovered/Not Resolved]
  - Anaemia [Unknown]
  - Product use in unapproved indication [Unknown]
  - Gastrointestinal carcinoma [Recovered/Resolved]
  - Lung disorder [Recovering/Resolving]
  - Hernia [Unknown]
  - Pain in extremity [Unknown]
  - Fatigue [Unknown]
  - Gait disturbance [Unknown]
  - Product prescribing error [Unknown]
